FAERS Safety Report 24146412 (Version 2)
Quarter: 2025Q1

REPORT INFORMATION
  Report Type: Spontaneous
  Country: SG (occurrence: SG)
  Receive Date: 20240729
  Receipt Date: 20250120
  Transmission Date: 20250408
  Serious: Yes (Death)
  Sender: ROCHE
  Company Number: SG-ROCHE-10000034101

PATIENT
  Age: 63 Year
  Sex: Female

DRUGS (2)
  1. HERCEPTIN [Suspect]
     Active Substance: TRASTUZUMAB
     Indication: Breast cancer
     Route: 058
     Dates: start: 20221024
  2. MORPHINE [Suspect]
     Active Substance: MORPHINE
     Indication: Product used for unknown indication
     Dosage: ABOUT THAN 2.5ML
     Route: 065

REACTIONS (2)
  - Death [Fatal]
  - Seizure [Unknown]

NARRATIVE: CASE EVENT DATE: 20240302
